FAERS Safety Report 23482032 (Version 1)
Quarter: 2024Q1

REPORT INFORMATION
  Report Type: Spontaneous
  Country: US (occurrence: None)
  Receive Date: 20240203
  Receipt Date: 20240203
  Transmission Date: 20240410
  Serious: Yes (Disabling, Other)
  Sender: FDA-Public Use
  Company Number: None

PATIENT
  Age: 33 Year
  Sex: Female
  Weight: 60.75 kg

DRUGS (6)
  1. KESIMPTA [Suspect]
     Active Substance: OFATUMUMAB
     Indication: Multiple sclerosis
     Dates: start: 20240111, end: 20240125
  2. BUPROPION [Concomitant]
     Active Substance: BUPROPION
  3. C [Concomitant]
  4. D [Concomitant]
  5. VITAMIN B COMPLEX [Concomitant]
     Active Substance: CYANOCOBALAMIN\DEXPANTHENOL\NIACINAMIDE\PYRIDOXINE HYDROCHLORIDE\RIBOFLAVIN 5^-PHOSPHATE SODIUM\THIA
  6. FLAXSEED [Concomitant]
     Active Substance: FLAX SEED

REACTIONS (12)
  - Dizziness [None]
  - Malaise [None]
  - Syncope [None]
  - Blood pressure systolic decreased [None]
  - Brain fog [None]
  - Nystagmus [None]
  - Headache [None]
  - Ocular hyperaemia [None]
  - Cognitive disorder [None]
  - Muscle spasms [None]
  - Vision blurred [None]
  - Visual impairment [None]

NARRATIVE: CASE EVENT DATE: 20240127
